FAERS Safety Report 4320529-4 (Version None)
Quarter: 2004Q1

REPORT INFORMATION
  Report Type: 
  Country: None (occurrence: None)
  Receive Date: 20040322
  Receipt Date: 20040312
  Transmission Date: 20041129
  Serious: Yes (Hospitalization)
  Sender: FDA-Public Use
  Company Number: 200411043FR

PATIENT
  Age: 72 Year
  Sex: Female

DRUGS (11)
  1. FUROSEMIDE [Suspect]
     Indication: ESSENTIAL HYPERTENSION
     Route: 048
     Dates: end: 20031203
  2. NEURONTIN [Suspect]
     Dosage: DOSE UNIT: UNITS
     Route: 048
     Dates: end: 20031205
  3. APROVEL [Suspect]
     Indication: ESSENTIAL HYPERTENSION
     Route: 048
     Dates: end: 20031201
  4. CONTRAMAL [Suspect]
     Dosage: DOSE UNIT: UNITS
     Route: 048
     Dates: end: 20031201
  5. EFFEXOR [Suspect]
     Indication: DYSTHYMIC DISORDER
     Route: 048
     Dates: end: 20031201
  6. AMLOR [Concomitant]
     Route: 048
  7. GLUCOR [Concomitant]
     Route: 048
     Dates: end: 20031203
  8. OGAST [Concomitant]
     Route: 048
     Dates: end: 20031201
  9. DIFRAREL [Concomitant]
     Route: 048
     Dates: end: 20031202
  10. DAFALGAN [Concomitant]
     Route: 048
     Dates: end: 20031202
  11. VASTAREL 20 MG [Concomitant]
     Route: 048

REACTIONS (6)
  - BRADYCARDIA [None]
  - DIZZINESS [None]
  - FALL [None]
  - HEADACHE [None]
  - METABOLIC DISORDER [None]
  - NERVOUS SYSTEM DISORDER [None]
